FAERS Safety Report 24050535 (Version 1)
Quarter: 2024Q3

REPORT INFORMATION
  Report Type: Spontaneous
  Country: US (occurrence: US)
  Receive Date: 20240704
  Receipt Date: 20240704
  Transmission Date: 20241016
  Serious: Yes (Other)
  Sender: AUROBINDO
  Company Number: US-AUROBINDO-AUR-APL-2024-032044

PATIENT
  Age: 67 Year
  Sex: Male

DRUGS (6)
  1. FLUOROURACIL [Suspect]
     Active Substance: FLUOROURACIL
     Indication: Colorectal adenocarcinoma
     Dosage: UNK (COMPLETED 9 CYCLES)
     Route: 065
     Dates: start: 202202, end: 202207
  2. FLUOROURACIL [Suspect]
     Active Substance: FLUOROURACIL
     Dosage: UNK
     Route: 065
     Dates: start: 202208, end: 202304
  3. IRINOTECAN HYDROCHLORIDE [Suspect]
     Active Substance: IRINOTECAN HYDROCHLORIDE
     Indication: Colorectal adenocarcinoma
     Dosage: UNK
     Route: 065
     Dates: start: 202208, end: 202304
  4. OXALIPLATIN [Suspect]
     Active Substance: OXALIPLATIN
     Indication: Colorectal adenocarcinoma
     Dosage: UNK (COMPLETED 9 CYCLES)
     Route: 065
     Dates: start: 202202, end: 202207
  5. LEUCOVORIN [Suspect]
     Active Substance: LEUCOVORIN\LEUCOVORIN CALCIUM
     Indication: Colorectal adenocarcinoma
     Dosage: UNK (COMPLETED 9 CYCLES)
     Route: 065
     Dates: start: 202202, end: 202207
  6. LEUCOVORIN [Suspect]
     Active Substance: LEUCOVORIN\LEUCOVORIN CALCIUM
     Dosage: UNK
     Route: 065
     Dates: start: 202208, end: 202304

REACTIONS (1)
  - Drug ineffective [Unknown]
